FAERS Safety Report 8611693-7 (Version None)
Quarter: 2012Q3

REPORT INFORMATION
  Report Type: 
  Country: None (occurrence: None)
  Receive Date: 20120809
  Receipt Date: 20120725
  Transmission Date: 20120928
  Serious: Yes (Death, Hospitalization, Other)
  Sender: FDA-Public Use
  Company Number: 2012MA009090

PATIENT
  Age: 21 Year
  Sex: Male

DRUGS (5)
  1. ETHANOL [Suspect]
     Dosage: PO
     Route: 048
  2. MARIJUANA [Suspect]
     Dosage: PO
     Route: 048
  3. KADIAN (MORPHINE SULFATE EXTENED-RELEASE) CAPULES, 200MG (AELLC) [Suspect]
     Dosage: PO
     Route: 048
  4. CLONAZEPAM [Suspect]
     Dosage: PO
     Route: 048
  5. BENZODIAZEPINE [Suspect]
     Dosage: PO
     Route: 048

REACTIONS (9)
  - PULSE ABSENT [None]
  - BLOOD GLUCOSE INCREASED [None]
  - ALANINE AMINOTRANSFERASE INCREASED [None]
  - ASPARTATE AMINOTRANSFERASE INCREASED [None]
  - UNRESPONSIVE TO STIMULI [None]
  - HYPOXIC-ISCHAEMIC ENCEPHALOPATHY [None]
  - HYPOTENSION [None]
  - CARDIAC ARREST [None]
  - BRAIN OEDEMA [None]
